FAERS Safety Report 4664131-3 (Version None)
Quarter: 2005Q2

REPORT INFORMATION
  Report Type: 
  Country: None (occurrence: None)
  Receive Date: 20050512
  Receipt Date: 20050427
  Transmission Date: 20051028
  Serious: Yes (Disabling)
  Sender: FDA-Public Use
  Company Number: 602110

PATIENT
  Age: 60 Year
  Sex: Male
  Weight: 84 kg

DRUGS (5)
  1. GAMMAGARD S/D [Suspect]
     Indication: HYPOGAMMAGLOBULINAEMIA
     Dosage: 20 GM; INTRAVENOUS
     Route: 042
     Dates: start: 20050302, end: 20050302
  2. ERYTHROMYCIN [Concomitant]
  3. BECLOMETHASONE DIPROPIONATE [Concomitant]
  4. SEREVENT [Concomitant]
  5. SALBUTAMOL [Concomitant]

REACTIONS (2)
  - CIRCULATORY COLLAPSE [None]
  - HAEMORRHAGIC STROKE [None]
